FAERS Safety Report 13342769 (Version 1)
Quarter: 2017Q1

REPORT INFORMATION
  Report Type: Spontaneous
  Country: FR (occurrence: FR)
  Receive Date: 20170316
  Receipt Date: 20170316
  Transmission Date: 20170428
  Serious: Yes (Hospitalization)
  Sender: FDA-Public Use
  Company Number: FR-PFIZER INC-2017109935

PATIENT
  Age: 88 Year
  Sex: Female

DRUGS (12)
  1. DOLIPRANE [Concomitant]
     Active Substance: ACETAMINOPHEN
     Dosage: 1 G, 2X/DAY
  2. ESIDREX [Suspect]
     Active Substance: HYDROCHLOROTHIAZIDE
     Indication: HYPERTENSION
     Dosage: UNK
     Dates: end: 20170302
  3. UVEDOSE [Concomitant]
     Active Substance: CHOLECALCIFEROL
  4. NISISCO [Concomitant]
     Active Substance: HYDROCHLOROTHIAZIDE\VALSARTAN
  5. VASTEN /00880402/ [Suspect]
     Active Substance: PRAVASTATIN SODIUM
     Indication: HYPERCHOLESTEROLAEMIA
     Dosage: UNK
     Route: 048
     Dates: end: 20170302
  6. NEBIVOLOL. [Concomitant]
     Active Substance: NEBIVOLOL
     Dosage: 5 MG, 1X/DAY, IN THE MORNING
  7. KARDEGIC [Concomitant]
     Active Substance: ASPIRIN LYSINE
  8. EUPANTOL [Concomitant]
     Active Substance: PANTOPRAZOLE SODIUM
  9. LYRICA [Suspect]
     Active Substance: PREGABALIN
     Dosage: 75 MG, 2X/DAY, MORNING AND EVENING
     Route: 048
     Dates: start: 20170225, end: 20170301
  10. LYRICA [Suspect]
     Active Substance: PREGABALIN
     Indication: BACK PAIN
     Dosage: 50 MG, 2X/DAY, MORNING AND EVENING
     Route: 048
     Dates: start: 20170222, end: 20170224
  11. ALPRESS [Concomitant]
     Active Substance: PRAZOSIN
     Dosage: 10 MG, 1X/DAY, IN THE MORNING
  12. OXYNORMORO [Concomitant]
     Active Substance: OXYCODONE
     Dosage: 2 MG, EVERY 4 HRS
     Dates: start: 20170225

REACTIONS (1)
  - Hyponatraemia [Recovering/Resolving]

NARRATIVE: CASE EVENT DATE: 20170227
